FAERS Safety Report 7109006-5 (Version None)
Quarter: 2010Q4

REPORT INFORMATION
  Report Type: 
  Country: None (occurrence: None)
  Receive Date: 20101110
  Receipt Date: 20101029
  Transmission Date: 20110411
  Serious: Yes (Hospitalization)
  Sender: FDA-Public Use
  Company Number: WAES 0905USA03956

PATIENT
  Age: 94 Year
  Sex: Female

DRUGS (3)
  1. HYZAAR [Suspect]
     Indication: HYPERTENSION
     Dosage: 1 DOSE/DAILY PO
     Route: 048
     Dates: start: 20071121, end: 20081229
  2. LANIRAPID [Concomitant]
  3. SUNRYTHM [Concomitant]

REACTIONS (1)
  - LOSS OF CONSCIOUSNESS [None]
